FAERS Safety Report 9328059 (Version 1)
Quarter: 2013Q2

REPORT INFORMATION
  Report Type: Spontaneous
  Country: US (occurrence: US)
  Receive Date: 20130604
  Receipt Date: 20130604
  Transmission Date: 20140414
  Serious: No
  Sender: FDA-Public Use
  Company Number: US-SANOFI-AVENTIS-2012SA031686

PATIENT
  Sex: Male

DRUGS (2)
  1. LANTUS [Suspect]
     Route: 058
  2. SOLOSTAR [Suspect]

REACTIONS (3)
  - Diabetic complication [Not Recovered/Not Resolved]
  - Malaise [Not Recovered/Not Resolved]
  - Stress [Not Recovered/Not Resolved]
